FAERS Safety Report 14007813 (Version 1)
Quarter: 2017Q3

REPORT INFORMATION
  Report Type: Spontaneous
  Country: US (occurrence: US)
  Receive Date: 20170925
  Receipt Date: 20170925
  Transmission Date: 20171128
  Serious: Yes (Hospitalization)
  Sender: FDA-Public Use
  Company Number: US-ASTRAZENECA-2017SE96302

PATIENT
  Age: 864 Month
  Sex: Female
  Weight: 82 kg

DRUGS (14)
  1. DOXEPIN [Concomitant]
     Active Substance: DOXEPIN
     Indication: RESTLESSNESS
     Route: 048
  2. BRILINTA [Suspect]
     Active Substance: TICAGRELOR
     Indication: MYOCARDIAL INFARCTION
     Route: 048
     Dates: start: 201607, end: 20170917
  3. DOXYCYCLINE. [Concomitant]
     Active Substance: DOXYCYCLINE
     Indication: WOUND INFECTION STAPHYLOCOCCAL
     Route: 048
  4. ASPIRIN. [Concomitant]
     Active Substance: ASPIRIN
  5. METOPROLOL SUCCINATE. [Suspect]
     Active Substance: METOPROLOL SUCCINATE
     Indication: PROPHYLAXIS
     Route: 048
     Dates: start: 201607
  6. LEVOTHYROXINE. [Concomitant]
     Active Substance: LEVOTHYROXINE
     Indication: HYPOTHYROIDISM
     Route: 048
  7. HYDROCODONE [Concomitant]
     Active Substance: HYDROCODONE
     Indication: ABDOMINAL PAIN UPPER
     Dosage: 5 AND 325 MG, THREE TIMES A DAY
     Route: 048
  8. ACIDOPHILUS [Concomitant]
     Active Substance: LACTOBACILLUS ACIDOPHILUS
     Indication: ABDOMINAL DISCOMFORT
     Dosage: UNKNOWN
     Route: 048
  9. BRILINTA [Suspect]
     Active Substance: TICAGRELOR
     Indication: STENT PLACEMENT
     Route: 048
     Dates: start: 201607, end: 20170917
  10. LORAZEPAM. [Concomitant]
     Active Substance: LORAZEPAM
     Indication: ANXIETY
     Dosage: 1 MG, 1 OR 2 TIMES PER DAY PRESCRIBED UP TO 3 TIMES PER DAY FOR 2 YEARS
     Route: 048
  11. LOSARTAN. [Concomitant]
     Active Substance: LOSARTAN
     Indication: CARDIAC DISORDER
     Route: 048
     Dates: start: 201607
  12. WARFARIN [Concomitant]
     Active Substance: WARFARIN
     Indication: PULMONARY THROMBOSIS
     Dosage: FIVE AND ONE HALF MILLIGRAMS, DAILY
     Route: 048
     Dates: start: 201703
  13. GABAPENTIN. [Concomitant]
     Active Substance: GABAPENTIN
     Indication: RESTLESSNESS
     Route: 048
  14. ATORVASTATIN [Concomitant]
     Active Substance: ATORVASTATIN
     Indication: CARDIAC DISORDER
     Route: 048
     Dates: start: 201607

REACTIONS (7)
  - Dyspnoea [Unknown]
  - Off label use [Unknown]
  - Abdominal pain upper [Unknown]
  - Therapy cessation [Unknown]
  - Pulmonary thrombosis [Unknown]
  - Product use issue [Unknown]
  - Pain [Unknown]

NARRATIVE: CASE EVENT DATE: 201703
